FAERS Safety Report 10346587 (Version 2)
Quarter: 2014Q4

REPORT INFORMATION
  Report Type: Spontaneous
  Country: US (occurrence: US)
  Receive Date: 20140729
  Receipt Date: 20141021
  Transmission Date: 20150528
  Serious: No
  Sender: FDA-Public Use
  Company Number: US-009507513-1407USA008190

PATIENT
  Age: 34 Year
  Sex: Female
  Weight: 131.7 kg

DRUGS (1)
  1. NEXPLANON [Suspect]
     Active Substance: ETONOGESTREL
     Indication: CONTRACEPTION
     Dosage: LEF ARM
     Route: 059
     Dates: start: 201306

REACTIONS (3)
  - Dyspnoea [Unknown]
  - Chest pain [Unknown]
  - Chest pain [Unknown]

NARRATIVE: CASE EVENT DATE: 201405
